FAERS Safety Report 21243083 (Version 2)
Quarter: 2022Q3

REPORT INFORMATION
  Report Type: Spontaneous
  Country: US (occurrence: US)
  Receive Date: 20220823
  Receipt Date: 20220830
  Transmission Date: 20221026
  Serious: Yes (Hospitalization, Other)
  Sender: FDA-Public Use
  Company Number: US-GLAXOSMITHKLINE-US2022AMR120667

PATIENT
  Age: 59 Year
  Sex: Male
  Weight: 65 kg

DRUGS (15)
  1. BUPROPION HYDROCHLORIDE XL [Suspect]
     Active Substance: BUPROPION HYDROCHLORIDE
     Indication: Depression
     Dosage: 450 MG,QD
  2. PAXLOVID [Suspect]
     Active Substance: NIRMATRELVIR\RITONAVIR
     Indication: COVID-19
     Dosage: UNK
     Dates: start: 20220715
  3. PREZCOBIX [Concomitant]
     Active Substance: COBICISTAT\DARUNAVIR ETHANOLATE
     Indication: HIV test positive
     Dosage: 1 DF,QD,800/150 MG ONE A DAY DISPENSED IN STANDARD PHARMACYBOTTLE
  4. TIVICAY [Concomitant]
     Active Substance: DOLUTEGRAVIR SODIUM
     Indication: HIV test positive
     Dosage: 50 MG,QD ONE A DAY ONLY USED BY DATE ON PHARMACYSTICKER THAT IS OVER MANUFACTURER LABEL
  5. EMTRICITABINE [Concomitant]
     Active Substance: EMTRICITABINE
     Indication: HIV test positive
     Dosage: 200 MG, QD (ONE A DAY)OTHER THAN YEARS A AGO PRODUCT DISPENSED IN STANDARD PHARMACY BOTTLE
  6. OLMESARTAN MEDOXOMIL [Concomitant]
     Active Substance: OLMESARTAN MEDOXOMIL
     Indication: Hypertension
     Dosage: 40 MG, OTHER THAN YEARS AGO PRODUCT DISPENSED IN STANDARD PHARMACY BOTTLE
  7. VALACYCLOVIR [Concomitant]
     Active Substance: VALACYCLOVIR HYDROCHLORIDE
     Indication: Rash vesicular
     Dosage: 500 MG,QD (ONCE A DAY) DISPENSED IN A STANDARD PHARMACYBOTTLE
  8. MONTELUKAST SODIUM [Concomitant]
     Active Substance: MONTELUKAST SODIUM
     Indication: Multiple allergies
     Dosage: 10 MG (DISPENSED IN STANDARD PHARMACY BOTTLE)
  9. PANTOPRAZOLE SODIUM [Concomitant]
     Active Substance: PANTOPRAZOLE SODIUM
     Indication: Hyperchlorhydria
     Dosage: 40 MG (DISPENSED IN STANDARD PHARMACY BOTTLE)
  10. GABAPENTIN [Concomitant]
     Active Substance: GABAPENTIN
     Indication: Sleep disorder
     Dosage: 300 MG, QD, IN THE EVENING (DISPENSED IN STANDARD PHARMACY BOTTLE)
  11. ATORVASTATIN CALCIUM [Concomitant]
     Active Substance: ATORVASTATIN CALCIUM
     Indication: Blood cholesterol
     Dosage: 20 MG, (DISPENSED IN STANDARD PHARMACY BOTTLE)
  12. LEXAPRO [Concomitant]
     Active Substance: ESCITALOPRAM OXALATE
     Indication: Depression
     Dosage: 5 MG, Z,  5 MG TAKEN ABOUT EVERY OTHER DAY(DISPENSED IN STANDARD PHARMACY BOTTLE)
  13. JANUVIA [Concomitant]
     Active Substance: SITAGLIPTIN PHOSPHATE
     Indication: Type 2 diabetes mellitus
     Dosage: 100 MG DISPENSED IN STANDARD PHARMACY BOTTLE
  14. ZOLPIDEM TARTRATE [Concomitant]
     Active Substance: ZOLPIDEM TARTRATE
     Indication: Sleep disorder
     Dosage: 12.5 MG DISPENSED IN STANDARD PHARMACY BOTTLE
  15. METFORMIN [Concomitant]
     Active Substance: METFORMIN HYDROCHLORIDE
     Indication: Product used for unknown indication
     Dosage: 500 MG

REACTIONS (12)
  - Hypertension [Recovering/Resolving]
  - Blood sodium decreased [Unknown]
  - Weight decreased [Recovering/Resolving]
  - COVID-19 [Unknown]
  - Asthenia [Recovering/Resolving]
  - Feeling abnormal [Unknown]
  - Condition aggravated [Unknown]
  - Nasal congestion [Unknown]
  - Oropharyngeal pain [Unknown]
  - Cough [Unknown]
  - Dysphonia [Unknown]
  - Off label use [Unknown]

NARRATIVE: CASE EVENT DATE: 20220717
